FAERS Safety Report 5010350-6 (Version None)
Quarter: 2006Q2

REPORT INFORMATION
  Report Type: 
  Country: None (occurrence: None)
  Receive Date: 20060523
  Receipt Date: 20060509
  Transmission Date: 20061013
  Serious: Yes (Hospitalization)
  Sender: FDA-Public Use
  Company Number: HQWYE243610MAY06

PATIENT
  Age: 37 Year
  Sex: Female

DRUGS (6)
  1. PREMARIN [Suspect]
     Indication: HOT FLUSH
     Dosage: 0.625MG FREQUENCY NOT SPECIFIED, ORAL; SEE IMAGE
     Route: 048
     Dates: start: 19920101
  2. MICARDIS [Concomitant]
  3. NORVASC [Concomitant]
  4. HYDROCHLOROTHIAZIDE [Concomitant]
  5. NEXIUM [Concomitant]
  6. LEVBID (HYOSCYAMINE SULFATE) [Concomitant]

REACTIONS (4)
  - GALLBLADDER DISORDER [None]
  - HEPATIC CIRRHOSIS [None]
  - HYPERTENSION [None]
  - WEIGHT INCREASED [None]
